FAERS Safety Report 5094096-4 (Version None)
Quarter: 2006Q3

REPORT INFORMATION
  Report Type: 
  Country: None (occurrence: None)
  Receive Date: 20060831
  Receipt Date: 20060823
  Transmission Date: 20061208
  Serious: Yes (Other)
  Sender: FDA-Public Use
  Company Number: US-MERCK-0608USA05593

PATIENT
  Age: 61 Year
  Sex: Female

DRUGS (6)
  1. ZOCOR [Suspect]
     Indication: BLOOD CHOLESTEROL INCREASED
     Route: 048
     Dates: start: 20050801
  2. SPIRONOLACTONE [Concomitant]
     Route: 065
  3. PLAVIX [Concomitant]
     Route: 065
  4. CORTIRON [Concomitant]
     Route: 065
  5. NOVOLOG [Concomitant]
     Route: 065
  6. LANTUS [Concomitant]
     Route: 065

REACTIONS (2)
  - BREAST ENLARGEMENT [None]
  - CARDIAC DISORDER [None]
